FAERS Safety Report 4272261-3 (Version None)
Quarter: 2004Q1

REPORT INFORMATION
  Report Type: 
  Country: None (occurrence: None)
  Receive Date: 20040114
  Receipt Date: 20040105
  Transmission Date: 20041129
  Serious: Yes (Other)
  Sender: FDA-Public Use
  Company Number: 2003117658

PATIENT
  Age: 50 Year
  Sex: Female

DRUGS (7)
  1. NEURONTIN [Suspect]
     Indication: POST HERPETIC NEURALGIA
     Dosage: SEE IMAGE
     Route: 048
     Dates: start: 20020823, end: 20030320
  2. NEURONTIN [Suspect]
     Indication: POST HERPETIC NEURALGIA
     Dosage: SEE IMAGE
     Route: 048
     Dates: start: 20030321, end: 20030922
  3. NEURONTIN [Suspect]
     Indication: POST HERPETIC NEURALGIA
     Dosage: SEE IMAGE
     Route: 048
     Dates: start: 20030923
  4. MAGNESIUM PIDOLATE (MAGNESIUM PIDOLATE) [Concomitant]
  5. PANTOPRAZOLE SODIUM (PANTOPRAZOLE SODIUM) [Concomitant]
  6. FOLIC ACID [Concomitant]
  7. CYANOCOBALAMIN (CYANOCOBALAMIN) [Concomitant]

REACTIONS (1)
  - FACE OEDEMA [None]
